FAERS Safety Report 7713754-3 (Version None)
Quarter: 2011Q3

REPORT INFORMATION
  Report Type: 
  Country: None (occurrence: None)
  Receive Date: 20110826
  Receipt Date: 20110823
  Transmission Date: 20111222
  Serious: No
  Sender: FDA-Public Use
  Company Number: US-PFIZER INC-2011196375

PATIENT
  Age: 6 Year
  Sex: Female

DRUGS (2)
  1. PREMARIN [Suspect]
     Indication: VULVAL DISORDER
  2. PREMARIN [Suspect]
     Indication: OFF LABEL USE
     Dosage: UNK

REACTIONS (1)
  - HIRSUTISM [None]
